FAERS Safety Report 5444908-7 (Version None)
Quarter: 2007Q3

REPORT INFORMATION
  Report Type: 
  Country: None (occurrence: None)
  Receive Date: 20070906
  Receipt Date: 20070830
  Transmission Date: 20080115
  Serious: Yes (Hospitalization)
  Sender: FDA-Public Use
  Company Number: A0678608A

PATIENT
  Age: 3 Year
  Sex: Male
  Weight: 13 kg

DRUGS (5)
  1. CLAVULIN [Suspect]
     Indication: PNEUMONIA
     Dosage: 4ML THREE TIMES PER DAY
     Route: 048
     Dates: start: 20070823
  2. PREDNISOLONE [Concomitant]
     Dosage: 4ML PER DAY
     Dates: start: 20070823
  3. AMBROXOL [Concomitant]
     Dosage: 2.5ML FOUR TIMES PER DAY
     Route: 048
     Dates: start: 20070823
  4. FENOTEROL [Concomitant]
  5. BEROTEC [Concomitant]
     Dosage: 4DROP FOUR TIMES PER DAY
     Route: 048
     Dates: start: 20070823

REACTIONS (2)
  - BRONCHITIS [None]
  - DRUG ADMINISTRATION ERROR [None]
